FAERS Safety Report 9694184 (Version 1)
Quarter: 2013Q4

REPORT INFORMATION
  Report Type: Spontaneous
  Country: JP (occurrence: JP)
  Receive Date: 20131118
  Receipt Date: 20131118
  Transmission Date: 20140711
  Serious: Yes (Hospitalization)
  Sender: FDA-Public Use
  Company Number: PHHY2013JP130479

PATIENT
  Age: 54 Year
  Sex: Male

DRUGS (3)
  1. RIFAMPICIN [Suspect]
     Indication: MEDIASTINAL ABSCESS
     Route: 048
  2. LINEZOLID [Interacting]
     Indication: MEDIASTINAL ABSCESS
     Route: 048
  3. SULFAMETHOXAZOLE W/TRIMETHOPRIM [Concomitant]
     Indication: MEDIASTINAL ABSCESS

REACTIONS (6)
  - Cardiac failure [Unknown]
  - Platelet count decreased [Recovering/Resolving]
  - Drug interaction [Unknown]
  - Mediastinal abscess [Recovering/Resolving]
  - Body temperature increased [Recovering/Resolving]
  - Drug effect decreased [Unknown]
